FAERS Safety Report 5931987-3 (Version None)
Quarter: 2008Q4

REPORT INFORMATION
  Report Type: 
  Country: None (occurrence: None)
  Receive Date: 20081027
  Receipt Date: 20081017
  Transmission Date: 20090506
  Serious: Yes (Hospitalization)
  Sender: FDA-Public Use
  Company Number: FR-PFIZER INC-2008088355

PATIENT
  Sex: Female

DRUGS (4)
  1. AMLOD [Suspect]
     Indication: HYPERTENSION
     Route: 048
     Dates: end: 20080620
  2. COAPROVEL [Suspect]
     Indication: HYPERTENSION
     Dosage: TEXT:12.5/300 MG
     Route: 048
     Dates: end: 20080620
  3. HYPERIUM [Suspect]
     Indication: HYPERTENSION
     Dosage: TEXT:1 DOSE FORM
     Route: 048
     Dates: end: 20080620
  4. DRUG, UNSPECIFIED [Concomitant]

REACTIONS (2)
  - CONFUSIONAL STATE [None]
  - FALL [None]
